FAERS Safety Report 18821527 (Version 1)
Quarter: 2021Q1

REPORT INFORMATION
  Report Type: Spontaneous
  Country: US (occurrence: US)
  Receive Date: 20210202
  Receipt Date: 20210202
  Transmission Date: 20210419
  Serious: No
  Sender: FDA-Public Use
  Company Number: None

PATIENT
  Age: 76 Year
  Sex: Female
  Weight: 83.7 kg

DRUGS (16)
  1. PROLIA [Concomitant]
     Active Substance: DENOSUMAB
  2. CALTRATE 600+D [Concomitant]
  3. ZYRTEC [Concomitant]
     Active Substance: CETIRIZINE HYDROCHLORIDE
  4. GAVISCON [Concomitant]
     Active Substance: ALUMINUM HYDROXIDE\MAGNESIUM CARBONATE
  5. HYDROXYZINE HCL [Concomitant]
     Active Substance: HYDROXYZINE HYDROCHLORIDE
  6. ACETAMINOPHEN. [Concomitant]
     Active Substance: ACETAMINOPHEN
  7. KRILL OIL [Concomitant]
     Active Substance: DIETARY SUPPLEMENT\KRILL OIL
  8. MULTIVITE [Concomitant]
     Active Substance: VITAMINS
  9. RED YEAST RICE [Concomitant]
     Active Substance: DIETARY SUPPLEMENT
  10. EYE DROPS [Concomitant]
     Active Substance: UNSPECIFIED INGREDIENT
  11. DUPIXENT [Suspect]
     Active Substance: DUPILUMAB
     Indication: PRURITUS
     Dosage: ?          QUANTITY:1 INJECTION(S);OTHER FREQUENCY:2X MONTH;?
     Route: 058
     Dates: start: 20201201, end: 20210202
  12. LANSOPRAZOLE. [Concomitant]
     Active Substance: LANSOPRAZOLE
  13. DUPIXENT [Suspect]
     Active Substance: DUPILUMAB
     Indication: ECZEMA
     Dosage: ?          QUANTITY:1 INJECTION(S);OTHER FREQUENCY:2X MONTH;?
     Route: 058
     Dates: start: 20201201, end: 20210202
  14. ITCHING TOPICAL [Concomitant]
  15. BENADRYL [Concomitant]
     Active Substance: DIPHENHYDRAMINE HYDROCHLORIDE
  16. IRON [Concomitant]
     Active Substance: IRON

REACTIONS (5)
  - Neck pain [None]
  - Pain [None]
  - Nerve compression [None]
  - Arthralgia [None]
  - Sciatica [None]

NARRATIVE: CASE EVENT DATE: 20201230
